FAERS Safety Report 17347703 (Version 1)
Quarter: 2020Q1

REPORT INFORMATION
  Report Type: Spontaneous
  Country: US (occurrence: US)
  Receive Date: 20200129
  Receipt Date: 20200129
  Transmission Date: 20200409
  Serious: Yes (Other)
  Sender: FDA-Public Use
  Company Number: None

PATIENT
  Age: 76 Year
  Sex: Male
  Weight: 78.3 kg

DRUGS (2)
  1. GABAPENTIN. [Suspect]
     Active Substance: GABAPENTIN
     Indication: SYNOVIAL CYST
     Route: 048
     Dates: start: 20191217, end: 20200107
  2. DECADRON [Concomitant]
     Active Substance: DEXAMETHASONE
     Dates: start: 20191217, end: 20200107

REACTIONS (6)
  - Aspiration [None]
  - Bowel movement irregularity [None]
  - Impaired gastric emptying [None]
  - Regurgitation [None]
  - Oedema [None]
  - Pain of skin [None]

NARRATIVE: CASE EVENT DATE: 20191227
